FAERS Safety Report 24808894 (Version 1)
Quarter: 2025Q1

REPORT INFORMATION
  Report Type: Spontaneous
  Country: US (occurrence: US)
  Receive Date: 20250106
  Receipt Date: 20250106
  Transmission Date: 20250409
  Serious: Yes (Hospitalization, Other)
  Sender: NOVITIUM PHARMA
  Company Number: US-NOVITIUMPHARMA-2025USNVP00002

PATIENT
  Age: 54 Year
  Sex: Female

DRUGS (5)
  1. HYDROXYCHLOROQUINE SULFATE [Suspect]
     Active Substance: HYDROXYCHLOROQUINE SULFATE
     Indication: Systemic lupus erythematosus
  2. ACYCLOVIR [Suspect]
     Active Substance: ACYCLOVIR
     Indication: Parainfluenzae virus infection
  3. ACYCLOVIR [Suspect]
     Active Substance: ACYCLOVIR
     Indication: Herpes simplex hepatitis
  4. BELIMUMAB [Concomitant]
     Active Substance: BELIMUMAB
     Indication: Systemic lupus erythematosus
  5. CEFDINIR [Concomitant]
     Active Substance: CEFDINIR
     Indication: Prophylaxis

REACTIONS (2)
  - Herpes simplex hepatitis [Unknown]
  - Condition aggravated [Unknown]
